FAERS Safety Report 17772322 (Version 1)
Quarter: 2020Q2

REPORT INFORMATION
  Report Type: Spontaneous
  Country: US (occurrence: US)
  Receive Date: 20200512
  Receipt Date: 20200512
  Transmission Date: 20200714
  Serious: No
  Sender: FDA-Public Use
  Company Number: US-NOVOPROD-688107

PATIENT
  Age: 64 Year
  Sex: Male

DRUGS (2)
  1. NORDITROPIN [Suspect]
     Active Substance: SOMATROPIN
     Indication: GROWTH HORMONE DEFICIENCY
     Dosage: 0.15 MG
     Route: 058
     Dates: start: 2011
  2. NORDITROPIN [Suspect]
     Active Substance: SOMATROPIN
     Indication: BLOOD TESTOSTERONE DECREASED

REACTIONS (1)
  - Pain [Not Recovered/Not Resolved]
